FAERS Safety Report 24927270 (Version 1)
Quarter: 2025Q1

REPORT INFORMATION
  Report Type: Spontaneous
  Country: ES (occurrence: ES)
  Receive Date: 20250205
  Receipt Date: 20250205
  Transmission Date: 20250409
  Serious: Yes (Hospitalization, Other)
  Sender: AUROBINDO
  Company Number: ES-AEMPS-1622711

PATIENT
  Age: 72 Year
  Sex: Male

DRUGS (6)
  1. CLOPIDOGREL [Suspect]
     Active Substance: CLOPIDOGREL BISULFATE
     Indication: Product use in unapproved indication
     Route: 048
     Dates: start: 20240807
  2. HYPERICUM PERFORATUM WHOLE [Suspect]
     Active Substance: HYPERICUM PERFORATUM WHOLE
     Indication: Product use in unapproved indication
     Route: 048
     Dates: start: 2024
  3. DAPAGLIFLOZIN [Concomitant]
     Active Substance: DAPAGLIFLOZIN
     Indication: Product use in unapproved indication
     Route: 048
     Dates: start: 20240501
  4. PRAMIPEXOLE [Concomitant]
     Active Substance: PRAMIPEXOLE
     Indication: Product use in unapproved indication
     Route: 048
     Dates: start: 20240501
  5. Lundeos [Concomitant]
     Indication: Product use in unapproved indication
     Route: 048
     Dates: start: 20240501
  6. OMACOR [Concomitant]
     Active Substance: OMEGA-3-ACID ETHYL ESTERS
     Indication: Product use in unapproved indication
     Route: 048
     Dates: start: 20240501

REACTIONS (2)
  - Hepatitis cholestatic [Recovering/Resolving]
  - Hyperbilirubinaemia [Recovering/Resolving]

NARRATIVE: CASE EVENT DATE: 20240919
